FAERS Safety Report 10694698 (Version 1)
Quarter: 2015Q1

REPORT INFORMATION
  Report Type: Spontaneous
  Country: US (occurrence: None)
  Receive Date: 20150105
  Receipt Date: 20150105
  Transmission Date: 20150721
  Serious: No
  Sender: FDA-Public Use
  Company Number: None

PATIENT
  Age: 36 Year
  Sex: Female
  Weight: 58.06 kg

DRUGS (1)
  1. MEFLOQUINE [Suspect]
     Active Substance: MEFLOQUINE
     Indication: MALARIA PROPHYLAXIS
     Route: 048
     Dates: start: 20131212, end: 20131222

REACTIONS (7)
  - Dizziness [None]
  - Feeling abnormal [None]
  - Inappropriate schedule of drug administration [None]
  - Drug prescribing error [None]
  - Asthenia [None]
  - Nausea [None]
  - Vomiting [None]

NARRATIVE: CASE EVENT DATE: 20131222
